FAERS Safety Report 14389720 (Version 1)
Quarter: 2018Q1

REPORT INFORMATION
  Report Type: Spontaneous
  Country: US (occurrence: US)
  Receive Date: 20180115
  Receipt Date: 20180115
  Transmission Date: 20180509
  Serious: No
  Sender: FDA-Public Use
  Company Number: US-009507513-1801USA001953

PATIENT
  Age: 25 Year
  Sex: Female
  Weight: 59.86 kg

DRUGS (1)
  1. NEXPLANON [Suspect]
     Active Substance: ETONOGESTREL
     Dosage: 1 DF, 3 YEARS IMPLANT, RIGTH ARM
     Route: 059
     Dates: start: 201707

REACTIONS (4)
  - Mood swings [Not Recovered/Not Resolved]
  - Back pain [Not Recovered/Not Resolved]
  - Breast enlargement [Not Recovered/Not Resolved]
  - Abdominal pain lower [Not Recovered/Not Resolved]

NARRATIVE: CASE EVENT DATE: 201711
